FAERS Safety Report 5699919-3 (Version None)
Quarter: 2008Q2

REPORT INFORMATION
  Report Type: 
  Country: None (occurrence: None)
  Receive Date: 20080410
  Receipt Date: 20080404
  Transmission Date: 20081010
  Serious: Yes (Hospitalization, Other)
  Sender: FDA-Public Use
  Company Number: US-MERCK-0804USA01259

PATIENT
  Sex: Male

DRUGS (1)
  1. VYTORIN [Suspect]
     Indication: BLOOD CHOLESTEROL INCREASED
     Route: 048
     Dates: start: 20060201

REACTIONS (6)
  - CHEST PAIN [None]
  - DEPRESSION [None]
  - FEAR [None]
  - FLATULENCE [None]
  - MYOCARDIAL INFARCTION [None]
  - PAIN [None]
